FAERS Safety Report 14995718 (Version 3)
Quarter: 2018Q3

REPORT INFORMATION
  Report Type: Spontaneous
  Country: US (occurrence: US)
  Receive Date: 20180611
  Receipt Date: 20180716
  Transmission Date: 20181010
  Serious: Yes (Hospitalization, Other)
  Sender: FDA-Public Use
  Company Number: US-UNITED THERAPEUTICS-UNT-2018-008138

PATIENT
  Age: 66 Year
  Sex: Female
  Weight: 77.98 kg

DRUGS (1)
  1. TYVASO [Suspect]
     Active Substance: TREPROSTINIL
     Indication: PULMONARY ARTERIAL HYPERTENSION
     Dosage: 18?54 MICROGRAMS, QID
     Dates: start: 20130627

REACTIONS (3)
  - Pulmonary hypertension [Unknown]
  - Sepsis [Unknown]
  - Apparent death [Unknown]

NARRATIVE: CASE EVENT DATE: 2018
